FAERS Safety Report 6653171-0 (Version None)
Quarter: 2010Q1

REPORT INFORMATION
  Report Type: 
  Country: None (occurrence: None)
  Receive Date: 20100326
  Receipt Date: 20100324
  Transmission Date: 20100710
  Serious: Yes (Other)
  Sender: FDA-Public Use
  Company Number: ZA-BRISTOL-MYERS SQUIBB COMPANY-14808265

PATIENT
  Age: 5 Year
  Sex: Male
  Weight: 20 kg

DRUGS (7)
  1. ATAZANAVIR [Suspect]
     Indication: HIV INFECTION
     Dosage: LAST DOSE 25AUG09
     Route: 048
     Dates: start: 20050217
  2. LAMIVUDINE [Suspect]
     Indication: HIV INFECTION
     Dosage: LAST DOSE 25AUG09
     Route: 048
     Dates: start: 20050217
  3. ZIDOVUDINE [Suspect]
     Indication: HIV INFECTION
     Dosage: 100MG,LAST DOSE 25AUG09
     Dates: start: 20080305
  4. RITONAVIR [Suspect]
     Indication: HIV INFECTION
     Dosage: LAST DOSE 25AUG09
     Route: 048
     Dates: start: 20050217
  5. MULTI-VITAMIN [Concomitant]
     Dates: start: 20050210
  6. INFLAMMIDE [Concomitant]
     Dates: start: 20060704
  7. ASTHAVENT [Concomitant]
     Dosage: ASTHAVENT PUFFS
     Dates: start: 20080507

REACTIONS (1)
  - LIPOATROPHY [None]
